FAERS Safety Report 26209631 (Version 1)
Quarter: 2025Q4

REPORT INFORMATION
  Report Type: Report from Study
  Country: US (occurrence: US)
  Receive Date: 20251229
  Receipt Date: 20251229
  Transmission Date: 20260118
  Serious: Yes (Other)
  Sender: ALEXION PHARMACEUTICALS
  Company Number: US-ASTRAZENECA-202512NAM019739US

PATIENT
  Sex: Female

DRUGS (1)
  1. OLAPARIB [Suspect]
     Active Substance: OLAPARIB
     Indication: Breast cancer
     Dosage: 300 MILLIGRAM, BID
     Route: 061
     Dates: start: 20251126

REACTIONS (5)
  - Fatigue [Unknown]
  - Dysgeusia [Unknown]
  - Headache [Unknown]
  - Nausea [Unknown]
  - Neuropathy peripheral [Unknown]
